FAERS Safety Report 25755389 (Version 2)
Quarter: 2025Q4

REPORT INFORMATION
  Report Type: Report from Study
  Country: US (occurrence: US)
  Receive Date: 20250903
  Receipt Date: 20251003
  Transmission Date: 20260118
  Serious: Yes (Hospitalization, Other)
  Sender: MALLINCKRODT
  Company Number: US-MALLINCKRODT-MNK202505188

PATIENT
  Age: 58 Year
  Sex: Male

DRUGS (4)
  1. CORTICOTROPIN [Suspect]
     Active Substance: CORTICOTROPIN
     Indication: Nephritic syndrome
     Route: 058
  2. BUMEX [Suspect]
     Active Substance: BUMETANIDE
     Indication: Swelling
  3. FLEXERIL [Concomitant]
     Active Substance: CYCLOBENZAPRINE HYDROCHLORIDE
     Indication: Pain management
     Dosage: UNKNOWN
  4. OXYCODONE [Concomitant]
     Active Substance: OXYCODONE
     Indication: Pain management
     Dosage: UNKNOWN

REACTIONS (10)
  - Proteinuria [Unknown]
  - Hydronephrosis [Unknown]
  - Renal injury [Unknown]
  - Thyroid disorder [Unknown]
  - Muscle spasms [Unknown]
  - Scrotal swelling [Unknown]
  - Skin irritation [Unknown]
  - Peripheral swelling [Unknown]
  - Insomnia [Unknown]
  - Product dose omission issue [Unknown]
